FAERS Safety Report 10199634 (Version 1)
Quarter: 2014Q2

REPORT INFORMATION
  Report Type: Spontaneous
  Country: US (occurrence: None)
  Receive Date: 20140523
  Receipt Date: 20140523
  Transmission Date: 20141212
  Serious: Yes (Life-Threatening, Hospitalization, Other)
  Sender: FDA-Public Use
  Company Number: None

PATIENT
  Age: 40 Year
  Sex: Female
  Weight: 94.35 kg

DRUGS (1)
  1. METOPROLOL [Suspect]
     Indication: EXTRASYSTOLES
     Dosage: 1 PER DAY ONCE DAILY --?DURATION: EIGHT YEARS?

REACTIONS (14)
  - Dyspnoea [None]
  - Dizziness [None]
  - Weight increased [None]
  - Blood alkaline phosphatase increased [None]
  - Peripheral swelling [None]
  - Peripheral swelling [None]
  - Fatigue [None]
  - Fatigue [None]
  - Feeling abnormal [None]
  - Pruritus [None]
  - Musculoskeletal pain [None]
  - Chills [None]
  - Insomnia [None]
  - Hypertension [None]
